FAERS Safety Report 19364215 (Version 1)
Quarter: 2021Q2

REPORT INFORMATION
  Report Type: Report from Study
  Country: US (occurrence: US)
  Receive Date: 20210602
  Receipt Date: 20210602
  Transmission Date: 20210717
  Serious: Yes (Hospitalization, Other)
  Sender: FDA-Public Use
  Company Number: US-PFIZER INC-2021438234

PATIENT
  Age: 64 Year
  Sex: Female

DRUGS (1)
  1. IBRANCE [Suspect]
     Active Substance: PALBOCICLIB
     Indication: BREAST CANCER FEMALE
     Dosage: 100 MG, CYCLIC, (ONCE DAILY, 21 DAYS ON, 7 OFF)
     Route: 048
     Dates: start: 20210409, end: 20210425

REACTIONS (6)
  - Dysphagia [Recovering/Resolving]
  - Nausea [Recovering/Resolving]
  - Pneumothorax [Unknown]
  - Vomiting [Recovering/Resolving]
  - Pneumonia [Unknown]
  - Cough [Not Recovered/Not Resolved]

NARRATIVE: CASE EVENT DATE: 202104
